FAERS Safety Report 18872253 (Version 1)
Quarter: 2021Q1

REPORT INFORMATION
  Report Type: Spontaneous
  Country: US (occurrence: US)
  Receive Date: 20210210
  Receipt Date: 20210210
  Transmission Date: 20210420
  Serious: No
  Sender: FDA-Public Use
  Company Number: None

PATIENT
  Sex: Male

DRUGS (1)
  1. FML [Suspect]
     Active Substance: FLUOROMETHOLONE

REACTIONS (5)
  - Hypersensitivity [None]
  - Burning sensation [None]
  - Swelling [None]
  - Pruritus [None]
  - Blister [None]
